FAERS Safety Report 20706377 (Version 2)
Quarter: 2022Q2

REPORT INFORMATION
  Report Type: Report from Study
  Country: IT (occurrence: IT)
  Receive Date: 20220413
  Receipt Date: 20220520
  Transmission Date: 20220721
  Serious: Yes (Hospitalization)
  Sender: FDA-Public Use
  Company Number: None

PATIENT
  Age: 75 Year
  Sex: Male

DRUGS (7)
  1. CLOPIDOGREL [Interacting]
     Active Substance: CLOPIDOGREL BISULFATE
     Dosage: UNIT DOSE 1 DF,FREQUENCY TIME 1 DAYS,INTERACTION AGENTS
     Route: 048
  2. ASPIRIN [Interacting]
     Active Substance: ASPIRIN
     Dosage: CARDIOASPIRIN 100 MG GASTRORESISTENTI TABLETS,UNIT DOSE 1DF,INTERACTING DRUGS
     Route: 048
  3. ATORVASTATIN [Concomitant]
     Active Substance: ATORVASTATIN
  4. LANSOPRAZOLE [Concomitant]
     Active Substance: LANSOPRAZOLE
  5. PAROXETINE [Concomitant]
     Active Substance: PAROXETINE
  6. KAYEXALATE [Concomitant]
     Active Substance: SODIUM POLYSTYRENE SULFONATE
  7. AMLODIPINE [Concomitant]
     Active Substance: AMLODIPINE BESYLATE

REACTIONS (4)
  - Haematemesis [Recovering/Resolving]
  - Gastric ulcer [Recovering/Resolving]
  - Anaemia [Recovering/Resolving]
  - Drug interaction [Recovering/Resolving]

NARRATIVE: CASE EVENT DATE: 20220119
